FAERS Safety Report 6619162-0 (Version None)
Quarter: 2010Q1

REPORT INFORMATION
  Report Type: 
  Country: None (occurrence: None)
  Receive Date: 20100304
  Receipt Date: 20100304
  Transmission Date: 20100710
  Serious: No
  Sender: FDA-Public Use
  Company Number: None

PATIENT
  Age: 35 Year
  Sex: Female
  Weight: 63.05 kg

DRUGS (2)
  1. METRONIDAZOLE [Suspect]
     Indication: HELICOBACTER INFECTION
     Dosage: 500 MG 2 TIMES PER DAY PO
     Route: 048
     Dates: start: 20100228
  2. CLARITHROMYCIN [Concomitant]

REACTIONS (4)
  - DYSGEUSIA [None]
  - DYSPHAGIA [None]
  - PRODUCT COATING ISSUE [None]
  - PRODUCT TASTE ABNORMAL [None]
